FAERS Safety Report 8776516 (Version 1)
Quarter: 2012Q4

REPORT INFORMATION
  Report Type: 
  Country: BR (occurrence: BR)
  Receive Date: 20120910
  Receipt Date: 20120910
  Transmission Date: 20130627
  Serious: Yes (Death)
  Sender: FDA-Public Use
  Company Number: BR-PFIZER INC-2012186593

PATIENT
  Age: 44 Year
  Sex: Female
  Weight: 37 kg

DRUGS (2)
  1. SUTENT [Suspect]
     Indication: RENAL CANCER
     Dosage: 50 mg, 1x/day (one tablet once a day)
     Route: 048
     Dates: start: 20120701
  2. DEXAMETHASONE [Concomitant]
     Dosage: 4 mg, UNK

REACTIONS (4)
  - Death [Fatal]
  - Asthenia [Unknown]
  - Diarrhoea [Unknown]
  - Aphthous stomatitis [Unknown]
